FAERS Safety Report 12467969 (Version 1)
Quarter: 2016Q2

REPORT INFORMATION
  Report Type: Spontaneous
  Country: IT (occurrence: IT)
  Receive Date: 20160615
  Receipt Date: 20160615
  Transmission Date: 20160815
  Serious: Yes (Other)
  Sender: FDA-Public Use
  Company Number: IT-PFIZER INC-2016294517

PATIENT
  Age: 63 Year
  Sex: Male

DRUGS (2)
  1. FELDENE [Suspect]
     Active Substance: PIROXICAM
     Indication: BACK PAIN
     Dosage: 1 DF, TOTAL
     Route: 030
     Dates: start: 20160502, end: 20160502
  2. TACHIPIRINA [Suspect]
     Active Substance: ACETAMINOPHEN
     Indication: BACK PAIN
     Dosage: 1 DF, TOTAL
     Route: 048
     Dates: start: 20160502, end: 20160502

REACTIONS (4)
  - Pallor [Recovered/Resolved]
  - Hyperhidrosis [Recovered/Resolved]
  - Presyncope [Recovered/Resolved]
  - Asthenia [Recovered/Resolved]

NARRATIVE: CASE EVENT DATE: 20160502
